FAERS Safety Report 24179057 (Version 1)
Quarter: 2024Q3

REPORT INFORMATION
  Report Type: Spontaneous
  Country: US (occurrence: US)
  Receive Date: 20240806
  Receipt Date: 20240806
  Transmission Date: 20241017
  Serious: No
  Sender: BAYER
  Company Number: US-BAYER-2024A107702

PATIENT

DRUGS (2)
  1. MIRALAX [Suspect]
     Active Substance: POLYETHYLENE GLYCOL 3350
  2. METAMUCIL [Suspect]
     Active Substance: PLANTAGO SEED
     Indication: Gastrointestinal disorder
     Dosage: UNK, OM
     Route: 065

REACTIONS (1)
  - Faeces hard [Unknown]
